FAERS Safety Report 5637124-7 (Version None)
Quarter: 2008Q1

REPORT INFORMATION
  Report Type: 
  Country: None (occurrence: None)
  Receive Date: 20080225
  Receipt Date: 20071113
  Transmission Date: 20080703
  Serious: No
  Sender: FDA-Public Use
  Company Number: US-BRISTOL-MYERS SQUIBB COMPANY-13981071

PATIENT
  Age: 60 Year
  Sex: Male

DRUGS (1)
  1. GLUCOPHAGE [Suspect]
     Dates: start: 20070101

REACTIONS (1)
  - DIARRHOEA [None]
